FAERS Safety Report 8478551-2 (Version None)
Quarter: 2012Q2

REPORT INFORMATION
  Report Type: 
  Country: None (occurrence: None)
  Receive Date: 20120629
  Receipt Date: 20120618
  Transmission Date: 20120825
  Serious: Yes (Life-Threatening, Other)
  Sender: FDA-Public Use
  Company Number: GB-JHP PHARMACEUTICALS, LLC-JHP201200335

PATIENT
  Age: 17 Month

DRUGS (2)
  1. ROCURONIUM BROMIDE [Suspect]
  2. KETALAR [Suspect]
     Indication: INDUCTION OF ANAESTHESIA

REACTIONS (1)
  - CARDIAC ARREST [None]
